FAERS Safety Report 11073535 (Version 2)
Quarter: 2015Q3

REPORT INFORMATION
  Report Type: Report from Study
  Country: VE (occurrence: VE)
  Receive Date: 20150428
  Receipt Date: 20150706
  Transmission Date: 20151125
  Serious: Yes (Death)
  Sender: FDA-Public Use
  Company Number: VE-SA-2015SA049921

PATIENT
  Age: 65 Year
  Sex: Female

DRUGS (1)
  1. LANTUS [Suspect]
     Active Substance: INSULIN GLARGINE
     Indication: TYPE 2 DIABETES MELLITUS
     Route: 065
     Dates: start: 2013, end: 20141102

REACTIONS (2)
  - Drug administration error [Unknown]
  - Death [Fatal]

NARRATIVE: CASE EVENT DATE: 2013
